FAERS Safety Report 9619147 (Version 1)
Quarter: 2013Q4

REPORT INFORMATION
  Report Type: Spontaneous
  Country: US (occurrence: US)
  Receive Date: 20131014
  Receipt Date: 20131014
  Transmission Date: 20140711
  Serious: Yes (Hospitalization)
  Sender: FDA-Public Use
  Company Number: US-PFIZER INC-2013290874

PATIENT
  Age: 62 Year
  Sex: Female
  Weight: 78.46 kg

DRUGS (3)
  1. CELEBREX [Suspect]
     Indication: ARTHRITIS
     Dosage: 40 MG, 1X/DAY
  2. KLONOPIN [Concomitant]
     Indication: PSYCHIATRIC SYMPTOM
     Dosage: 1 MG, 3X/DAY
  3. DESYREL [Concomitant]
     Indication: PSYCHIATRIC SYMPTOM
     Dosage: 100MG IN MORNING AND 200MG AT NIGHT

REACTIONS (5)
  - Loss of consciousness [Unknown]
  - Abdominal pain [Unknown]
  - Gastrointestinal disorder [Unknown]
  - Appendix disorder [Unknown]
  - Hernia [Unknown]
